FAERS Safety Report 5245381-4 (Version None)
Quarter: 2007Q1

REPORT INFORMATION
  Report Type: 
  Country: None (occurrence: None)
  Receive Date: 20070223
  Receipt Date: 20070213
  Transmission Date: 20070707
  Serious: Yes (Other)
  Sender: FDA-Public Use
  Company Number: PHBS2007CL01963

PATIENT
  Age: 84 Year
  Sex: Male

DRUGS (7)
  1. THALIDOMIDE [Concomitant]
     Dosage: 100 MG/D
     Route: 065
  2. THALIDOMIDE [Concomitant]
     Dosage: 50 MG/D
     Route: 065
  3. DEXAMETHASONE [Concomitant]
     Dosage: 40 MG/DAY FOR 4 DAYS EACH MONTHS
     Route: 065
  4. DEXAMETHASONE [Concomitant]
     Dosage: IRREGULAR BASIS
     Route: 065
  5. TRANSFUSIONS [Concomitant]
     Dosage: TRANSFUISONS OF RED CELLS
     Route: 065
  6. EPOGEN [Concomitant]
     Dosage: 6000 UNITS 3 TIMES A WEEK
     Route: 065
  7. ZOLEDRONIC ACID [Suspect]
     Indication: MULTIPLE MYELOMA
     Dosage: 4 MG, PER MONTH
     Route: 042

REACTIONS (8)
  - ANAEMIA [None]
  - BONE DISORDER [None]
  - EXCESSIVE GRANULATION TISSUE [None]
  - GAIT DISTURBANCE [None]
  - MUSCLE FATIGUE [None]
  - OSTEONECROSIS [None]
  - TOOTH DISORDER [None]
  - TOOTH EXTRACTION [None]
